FAERS Safety Report 17116291 (Version 1)
Quarter: 2019Q4

REPORT INFORMATION
  Report Type: Spontaneous
  Country: ES (occurrence: ES)
  Receive Date: 20191205
  Receipt Date: 20191205
  Transmission Date: 20200122
  Serious: Yes (Other)
  Sender: FDA-Public Use
  Company Number: ES-MYLANLABS-2019M1118977

PATIENT
  Age: 21 Year
  Sex: Female

DRUGS (1)
  1. ISOTRETINOIN. [Suspect]
     Active Substance: ISOTRETINOIN
     Indication: ACNE
     Dosage: 1 DOSAGE FORM, QD
     Route: 048
     Dates: start: 20190301, end: 20190606

REACTIONS (2)
  - Anxiety [Recovering/Resolving]
  - Panic reaction [Recovering/Resolving]

NARRATIVE: CASE EVENT DATE: 20190607
